FAERS Safety Report 8213657-4 (Version None)
Quarter: 2012Q1

REPORT INFORMATION
  Report Type: 
  Country: None (occurrence: None)
  Receive Date: 20120315
  Receipt Date: 20120306
  Transmission Date: 20120608
  Serious: Yes (Other)
  Sender: FDA-Public Use
  Company Number: US-ASTRAZENECA-2011SE26636

PATIENT
  Age: 76 Year
  Sex: Female

DRUGS (1)
  1. SYMBICORT [Suspect]
     Route: 055

REACTIONS (3)
  - GASTRIC HAEMORRHAGE [None]
  - NASOPHARYNGITIS [None]
  - WALKING DISABILITY [None]
